FAERS Safety Report 6272267-9 (Version None)
Quarter: 2009Q3

REPORT INFORMATION
  Report Type: 
  Country: None (occurrence: None)
  Receive Date: 20090717
  Receipt Date: 20090706
  Transmission Date: 20100115
  Serious: Yes (Other)
  Sender: FDA-Public Use
  Company Number: JP-PFIZER INC-2009223166

PATIENT
  Age: 63 Year

DRUGS (17)
  1. ZYVOX [Suspect]
     Indication: ENCEPHALITIS
     Dosage: 600 MG, 2X/DAY
     Route: 042
     Dates: start: 20081104, end: 20081122
  2. ZYVOX [Suspect]
     Indication: LIVER ABSCESS
  3. ZYVOX [Suspect]
     Dosage: 600 MG, 2X/DAY
     Route: 048
     Dates: start: 20081202, end: 20081213
  4. ZYVOX [Suspect]
     Dosage: 600 MG, 2X/DAY
     Route: 048
     Dates: start: 20081214, end: 20081222
  5. FIRSTCIN [Concomitant]
     Route: 042
     Dates: start: 20081104, end: 20081115
  6. ALL OTHER THERAPEUTIC PRODUCTS [Concomitant]
     Route: 042
     Dates: start: 20081104, end: 20081106
  7. POLARAMINE [Concomitant]
     Route: 042
     Dates: start: 20081108, end: 20081108
  8. NESPO ^DOMPE^ [Concomitant]
     Route: 042
     Dates: start: 20081011, end: 20081122
  9. FESIN [Concomitant]
     Route: 042
     Dates: start: 20081011, end: 20081227
  10. OMEPRAL [Concomitant]
     Dosage: UNK
     Route: 048
  11. CALTAN [Concomitant]
     Dosage: UNK
     Route: 048
  12. ASPIRIN [Concomitant]
     Dosage: UNK
     Route: 048
  13. BASEN [Concomitant]
     Route: 048
  14. MYSLEE [Concomitant]
     Dosage: UNK
     Route: 048
  15. RENAGEL [Concomitant]
     Dosage: UNK
     Route: 048
  16. SELBEX [Concomitant]
     Dosage: UNK
     Route: 048
  17. AZELASTINE HCL [Concomitant]
     Route: 048
     Dates: start: 20081108, end: 20081114

REACTIONS (2)
  - ANAEMIA [None]
  - PLATELET COUNT DECREASED [None]
